FAERS Safety Report 10149618 (Version 1)
Quarter: 2014Q2

REPORT INFORMATION
  Report Type: Spontaneous
  Country: QA (occurrence: None)
  Receive Date: 20140430
  Receipt Date: 20140430
  Transmission Date: 20141212
  Serious: Yes (Life-Threatening, Hospitalization)
  Sender: FDA-Public Use
  Company Number: 2014HINLIT0380

PATIENT
  Age: 75 Year
  Sex: Female

DRUGS (11)
  1. HYDRALAZINE (HYDRALAZINE) UNKNOWN [Suspect]
     Indication: HYPERTENSIVE CRISIS
  2. POTASSIUM CHLORIDE (POSTASSIUM CHLORIDE) [Concomitant]
  3. POTASSIUM CHLORIDE (POTASSIUM CHLORIDE) [Concomitant]
  4. NIFEDIPINE (NIFEDIPINE) (NIFEDIPINE) [Concomitant]
  5. METOPROLOL (METOPROLOL) [Concomitant]
  6. PERIDOPRIL (PERINDOPRIL) [Concomitant]
  7. PERINDOPRIL (PERINDOPRIL) [Concomitant]
  8. ISOSORBIDE DINITRATE (ISOSORBIDE DINITRATE) (ISOSORBIDE DINITRATE) [Concomitant]
  9. VALPROIC ACID (VALPROIC ACID) [Concomitant]
  10. VALPROIC ACID (VALPROIC ACID) [Concomitant]
  11. AMLODIPINE (AMLODIPINE) [Concomitant]

REACTIONS (23)
  - Toxic epidermal necrolysis [None]
  - Asthenia [None]
  - Nausea [None]
  - Anaemia [None]
  - Thrombocytopenia [None]
  - Depressed level of consciousness [None]
  - Hypokalaemia [None]
  - Blood bilirubin increased [None]
  - Myocardial necrosis marker increased [None]
  - Proteinuria [None]
  - Aspartate aminotransferase increased [None]
  - Alanine aminotransferase increased [None]
  - Hypertensive crisis [None]
  - Multi-organ failure [None]
  - Acute myocardial infarction [None]
  - Respiratory failure [None]
  - Rash macular [None]
  - Rash erythematous [None]
  - Dermatitis bullous [None]
  - Generalised oedema [None]
  - Pulmonary oedema [None]
  - Bronchiolitis [None]
  - Skin lesion [None]
